FAERS Safety Report 7302017 (Version 2)
Quarter: 2014Q2

REPORT INFORMATION
  Report Type: Spontaneous
  Country: US (occurrence: None)
  Receive Date: 20100212
  Receipt Date: 20140515
  Transmission Date: 20141212
  Serious: Yes (Other)
  Sender: FDA-Public Use
  Company Number: 2010S1000816

PATIENT
  Age: 59 Year
  Sex: Male
  Weight: 83.92 kg

DRUGS (9)
  1. FLEET PHOSPHO-SODA ORAL SALINE LAXATIVE, GINGER-LEMON FLAVOR [Suspect]
     Indication: COLONOSCOPY
     Dosage: 90 ML; TOTAL; PO
     Route: 048
     Dates: start: 20030113
  2. DULCOLAX (BISACODYL) [Concomitant]
  3. OXYCODONE HCL ER (OXYCODONE HYDROCHLORIDE) [Concomitant]
  4. SIMVASTATIN [Concomitant]
  5. ANDROGEL (TESTOSTERONE) [Concomitant]
  6. OXYCONTIN (OXYCODONE HYDROCHLORIDE) [Concomitant]
  7. ENALAPRIL [Concomitant]
  8. HYDROCHLOROTHIAZIDE [Concomitant]
  9. CALCITROL [Concomitant]

REACTIONS (4)
  - Anaemia [None]
  - Hyperparathyroidism [None]
  - Renal failure [None]
  - Blood potassium increased [None]
